FAERS Safety Report 9830145 (Version 7)
Quarter: 2025Q4

REPORT INFORMATION
  Report Type: Report from Study
  Country: JP (occurrence: None)
  Receive Date: 20140120
  Receipt Date: 20251031
  Transmission Date: 20260117
  Serious: Yes (Hospitalization, Other)
  Sender: ALEXION PHARMACEUTICALS
  Company Number: JP-ALEXION PHARMACEUTICALS INC.-A201400084

PATIENT
  Age: 38 Year
  Sex: Male

DRUGS (8)
  1. SOLIRIS [Suspect]
     Active Substance: ECULIZUMAB
     Indication: Paroxysmal nocturnal haemoglobinuria
     Dosage: 600 MG, QW
     Dates: start: 20130710, end: 20130731
  2. SOLIRIS [Suspect]
     Active Substance: ECULIZUMAB
     Dosage: 900 MG, Q2W
     Dates: start: 20130807
  3. UNSPECIFIED INGREDIENT [Concomitant]
     Active Substance: UNSPECIFIED INGREDIENT
     Indication: Product used for unknown indication
     Dosage: UNK
     Route: 065
  4. PREDNISOLONE [Concomitant]
     Active Substance: PREDNISOLONE
     Indication: Product used for unknown indication
     Dosage: 3 MG, QD
  5. PRIMOBOLAN                         /00044802/ [Concomitant]
     Indication: Product used for unknown indication
     Dosage: 5 MG, QD
  6. FOLIC ACID [Concomitant]
     Active Substance: FOLIC ACID
     Indication: Product used for unknown indication
     Dosage: 15 MG, QD
     Dates: start: 20140210
  7. ALLOPURINOL [Concomitant]
     Active Substance: ALLOPURINOL
     Indication: Product used for unknown indication
     Dosage: 100 MG, QD
  8. METHYLCOBALAMIN [Concomitant]
     Active Substance: METHYLCOBALAMIN
     Indication: Product used for unknown indication
     Dosage: 1500 ?G, QD
     Dates: start: 20140210

REACTIONS (9)
  - Haemolysis [Recovering/Resolving]
  - Haemolysis [Unknown]
  - Haemolysis [Recovered/Resolved]
  - Haemolysis [Recovered/Resolved]
  - Gastroenteritis [Recovered/Resolved]
  - Gastroenteritis [Recovered/Resolved]
  - Gastroenteritis [Recovered/Resolved]
  - Haemolysis [Recovered/Resolved]
  - Drug ineffective [Unknown]

NARRATIVE: CASE EVENT DATE: 20130821
